FAERS Safety Report 8796728 (Version 2)
Quarter: 2012Q4

REPORT INFORMATION
  Report Type: 
  Country: US (occurrence: US)
  Receive Date: 20120917
  Receipt Date: 20120919
  Transmission Date: 20130627
  Serious: Yes (Death)
  Sender: FDA-Public Use
  Company Number: US-ROCHE-1129173

PATIENT
  Sex: Male

DRUGS (1)
  1. AVASTIN [Suspect]
     Indication: METASTASES TO LYMPH NODES
     Route: 065
     Dates: start: 20090528, end: 20090618

REACTIONS (1)
  - Death [Fatal]
